FAERS Safety Report 14526468 (Version 1)
Quarter: 2018Q1

REPORT INFORMATION
  Report Type: Spontaneous
  Country: IT (occurrence: IT)
  Receive Date: 20180213
  Receipt Date: 20180213
  Transmission Date: 20180509
  Serious: Yes (Hospitalization)
  Sender: FDA-Public Use
  Company Number: IT-TEVA-2018-IT-850793

PATIENT
  Age: 88 Year
  Sex: Female

DRUGS (10)
  1. SPIRIVA [Concomitant]
     Active Substance: TIOTROPIUM BROMIDE MONOHYDRATE
  2. FUROSEMIDE. [Suspect]
     Active Substance: FUROSEMIDE
     Indication: PRODUCT USED FOR UNKNOWN INDICATION
     Route: 048
     Dates: start: 20110423, end: 20110523
  3. DERMATRANS (NITROGLYCERIN) [Suspect]
     Active Substance: NITROGLYCERIN
     Route: 062
     Dates: start: 20110423, end: 20110523
  4. CLEXANE [Concomitant]
     Active Substance: ENOXAPARIN SODIUM
  5. CACIT [Concomitant]
     Active Substance: CALCIUM\VITAMIN D
  6. SERTRALINE [Suspect]
     Active Substance: SERTRALINE HYDROCHLORIDE
     Indication: PRODUCT USED FOR UNKNOWN INDICATION
     Route: 065
     Dates: start: 20110423, end: 20110523
  7. NITROGLYCERIN. [Suspect]
     Active Substance: NITROGLYCERIN
     Indication: PRODUCT USED FOR UNKNOWN INDICATION
     Route: 065
  8. LUVION (CANRENONE) [Suspect]
     Active Substance: CANRENONE
     Route: 048
     Dates: start: 20110423, end: 20110523
  9. ZYLORIC [Concomitant]
     Active Substance: ALLOPURINOL
  10. DILATREND [Concomitant]
     Active Substance: CARVEDILOL

REACTIONS (6)
  - Dehydration [Unknown]
  - Oliguria [Unknown]
  - Hyperkalaemia [Unknown]
  - Lethargy [Unknown]
  - Decreased appetite [Unknown]
  - Epistaxis [Unknown]

NARRATIVE: CASE EVENT DATE: 20110523
